FAERS Safety Report 10207469 (Version 1)
Quarter: 2014Q2

REPORT INFORMATION
  Report Type: Spontaneous
  Country: US (occurrence: None)
  Receive Date: 20140528
  Receipt Date: 20140528
  Transmission Date: 20141212
  Serious: Yes (Other)
  Sender: FDA-Public Use
  Company Number: None

PATIENT
  Age: 39 Year
  Sex: Male

DRUGS (1)
  1. VALTREX [Suspect]
     Indication: HERPES SIMPLEX
     Route: 048

REACTIONS (4)
  - Drug ineffective [None]
  - Herpes virus infection [None]
  - Disease recurrence [None]
  - Product substitution issue [None]
